FAERS Safety Report 21796901 (Version 1)
Quarter: 2022Q4

REPORT INFORMATION
  Report Type: Spontaneous
  Country: IT (occurrence: IT)
  Receive Date: 20221230
  Receipt Date: 20221230
  Transmission Date: 20230113
  Serious: Yes (Other)
  Sender: FDA-Public Use
  Company Number: IT-MINISAL02-899936

PATIENT
  Age: 80 Year
  Sex: Male
  Weight: 103 kg

DRUGS (4)
  1. OXALIPLATIN [Suspect]
     Active Substance: OXALIPLATIN
     Indication: Cholangiocarcinoma
     Dosage: 119 MILLIGRAM
     Route: 042
     Dates: start: 20220922
  2. FLUOROURACIL [Suspect]
     Active Substance: FLUOROURACIL
     Indication: Cholangiocarcinoma
     Dosage: 560 MILLIGRAM
     Route: 042
     Dates: start: 20220922
  3. FLUOROURACIL [Suspect]
     Active Substance: FLUOROURACIL
     Dosage: 3360 MILLIGRAM
     Route: 042
     Dates: start: 20220922
  4. LEVOLEUCOVORIN [Concomitant]
     Active Substance: LEVOLEUCOVORIN
     Indication: Cholangiocarcinoma
     Dosage: 280 MILLIGRAM
     Route: 042
     Dates: start: 20220922

REACTIONS (2)
  - Hyperbilirubinaemia [Not Recovered/Not Resolved]
  - Anaemia [Not Recovered/Not Resolved]

NARRATIVE: CASE EVENT DATE: 20221004
